FAERS Safety Report 12104192 (Version 1)
Quarter: 2016Q1

REPORT INFORMATION
  Report Type: Spontaneous
  Country: CO (occurrence: CO)
  Receive Date: 20160223
  Receipt Date: 20160223
  Transmission Date: 20160526
  Serious: Yes (Other)
  Sender: FDA-Public Use
  Company Number: CO-AMGEN-COLSP2016015477

PATIENT
  Age: 51 Year
  Sex: Male

DRUGS (1)
  1. ENBREL [Suspect]
     Active Substance: ETANERCEPT
     Indication: ANKYLOSING SPONDYLITIS
     Dosage: 50 MG, WEEKLY
     Route: 058
     Dates: start: 20160126

REACTIONS (11)
  - Malaise [Unknown]
  - Headache [Unknown]
  - Dehydration [Unknown]
  - Vomiting [Unknown]
  - Dysuria [Unknown]
  - Blood urine present [Unknown]
  - Urinary tract infection [Unknown]
  - Pyrexia [Unknown]
  - Dyspepsia [Unknown]
  - Disease recurrence [Unknown]
  - Ankylosing spondylitis [Unknown]

NARRATIVE: CASE EVENT DATE: 20160130
